FAERS Safety Report 11345705 (Version 3)
Quarter: 2015Q3

REPORT INFORMATION
  Report Type: Spontaneous
  Country: US (occurrence: US)
  Receive Date: 20150806
  Receipt Date: 20150911
  Transmission Date: 20151125
  Serious: Yes (Death, Other)
  Sender: FDA-Public Use
  Company Number: US-MERCK-1508USA002471

PATIENT
  Sex: Male
  Weight: 77.98 kg

DRUGS (2)
  1. JANUVIA [Suspect]
     Active Substance: SITAGLIPTIN PHOSPHATE
     Indication: TYPE 2 DIABETES MELLITUS
     Dosage: 50 MG, QD
     Route: 048
     Dates: start: 20130510, end: 20130610
  2. JANUMET [Suspect]
     Active Substance: METFORMIN HYDROCHLORIDE\SITAGLIPTIN PHOSPHATE
     Indication: TYPE 2 DIABETES MELLITUS
     Dosage: 50/500 MG, BID
     Route: 048
     Dates: start: 20110711, end: 20130930

REACTIONS (6)
  - Pancreatic carcinoma [Unknown]
  - Death [Fatal]
  - Cardiac operation [Unknown]
  - Peripheral artery bypass [Unknown]
  - Hip arthroplasty [Unknown]
  - Peripheral embolism [Unknown]

NARRATIVE: CASE EVENT DATE: 2011
